FAERS Safety Report 5714213-X (Version None)
Quarter: 2008Q2

REPORT INFORMATION
  Report Type: 
  Country: None (occurrence: None)
  Receive Date: 20080423
  Receipt Date: 20080111
  Transmission Date: 20081010
  Serious: No
  Sender: FDA-Public Use
  Company Number: US-KINGPHARMUSA00001-K200800041

PATIENT

DRUGS (3)
  1. SKELAXIN [Suspect]
     Indication: JOINT INJURY
     Dosage: 800 MG, QID
     Route: 048
     Dates: start: 20070101
  2. SKELAXIN [Suspect]
     Dosage: 2 TABLETS, TID
  3. CELEBREX [Concomitant]
     Dates: start: 20070101

REACTIONS (3)
  - DRUG EFFECT DECREASED [None]
  - DRUG INEFFECTIVE [None]
  - INCORRECT DOSE ADMINISTERED [None]
